FAERS Safety Report 8170114-1 (Version None)
Quarter: 2012Q1

REPORT INFORMATION
  Report Type: 
  Country: None (occurrence: None)
  Receive Date: 20120228
  Receipt Date: 20120213
  Transmission Date: 20120608
  Serious: Yes (Hospitalization)
  Sender: FDA-Public Use
  Company Number: PHEH2012US003733

PATIENT
  Sex: Female
  Weight: 68.39 kg

DRUGS (8)
  1. VITAMIN D [Concomitant]
  2. FISH OIL [Concomitant]
  3. CALCIUM [Concomitant]
  4. PROMETHAZINE [Concomitant]
  5. COARTEM [Suspect]
     Indication: MALARIA
     Dosage: 20 MG ARTHEMETER, 120 MG LUMEFANTRINE
     Route: 048
     Dates: start: 20101001
  6. ARTESUNATE [Concomitant]
  7. MULTI-VITAMINS [Concomitant]
  8. IRON [Concomitant]

REACTIONS (6)
  - ACUTE RESPIRATORY DISTRESS SYNDROME [None]
  - THROMBOCYTOPENIA [None]
  - CONDITION AGGRAVATED [None]
  - DRUG INEFFECTIVE [None]
  - MALARIA [None]
  - WRONG DRUG ADMINISTERED [None]
